FAERS Safety Report 5836656-6 (Version None)
Quarter: 2008Q3

REPORT INFORMATION
  Report Type: 
  Country: None (occurrence: None)
  Receive Date: 20080807
  Receipt Date: 20080707
  Transmission Date: 20090109
  Serious: No
  Sender: FDA-Public Use
  Company Number: US-BAYER-200716028NA

PATIENT
  Age: 51 Year
  Sex: Female
  Weight: 68 kg

DRUGS (1)
  1. MIRENA [Suspect]
     Indication: UTERINE LEIOMYOMA
     Route: 015
     Dates: start: 20071129

REACTIONS (3)
  - ABDOMINAL PAIN [None]
  - DIZZINESS [None]
  - PROCEDURAL PAIN [None]
